FAERS Safety Report 24244410 (Version 1)
Quarter: 2024Q3

REPORT INFORMATION
  Report Type: Spontaneous
  Country: GB (occurrence: GB)
  Receive Date: 20240823
  Receipt Date: 20240823
  Transmission Date: 20241017
  Serious: Yes (Other)
  Sender: TEVA
  Company Number: GB-MHRA-TPP192056C596254YC1723468541689

PATIENT
  Age: 57 Year
  Sex: Female
  Weight: 54 kg

DRUGS (11)
  1. GABAPENTIN [Suspect]
     Active Substance: GABAPENTIN
     Indication: Ill-defined disorder
     Dosage: TAKE ONE 3 AT NIGHT
     Route: 065
     Dates: start: 20240717
  2. AMITRIPTYLINE HYDROCHLORIDE [Concomitant]
     Active Substance: AMITRIPTYLINE HYDROCHLORIDE
     Indication: Ill-defined disorder
     Dosage: AT NIGHT, DOSE FORM REPORTED: TPP YC - PLEASE RECLASSIFY
     Dates: start: 20220201, end: 20240717
  3. PROPRANOLOL [Concomitant]
     Active Substance: PROPRANOLOL HYDROCHLORIDE
     Indication: Ill-defined disorder
     Dosage: DOSE FORM REPORTED: TPP YC - PLEASE RECLASSIFY
     Dates: start: 20240429
  4. HYLO FORTE [Concomitant]
     Indication: Ill-defined disorder
     Dosage: USE AS DIRECTED, DOSE FORM REPORTED: TPP YC - PLEASE RECLASSIFY
     Dates: start: 20230807
  5. IBUPROFEN [Concomitant]
     Active Substance: IBUPROFEN
     Indication: Ill-defined disorder
     Dosage: APPLY 3-4 TIMES/DAY, DOSE FORM REPORTED: TPP YC - PLEASE RECLASSIFY
     Dates: start: 20240412
  6. ATORVASTATIN [Concomitant]
     Active Substance: ATORVASTATIN
     Indication: Ill-defined disorder
     Dosage: DOSE FORM REPORTED: TPP YC - PLEASE RECLASSIFY
     Dates: start: 20230524
  7. PEPPERMINT OIL [Concomitant]
     Active Substance: PEPPERMINT OIL
     Indication: Ill-defined disorder
     Dosage: TIME INTERVAL: 0.33333333 DAYS: DOSE FORM REPORTED: TPP YC - PLEASE RECLASSIFY
     Dates: start: 20170801
  8. MOVICOL [Concomitant]
     Active Substance: POLYETHYLENE GLYCOL 3350\POTASSIUM CHLORIDE\SODIUM BICARBONATE\SODIUM CHLORIDE
     Indication: Ill-defined disorder
     Dosage: USE AS DIRECTED, DOSE FORM REPORTED: TPP YC - PLEASE RECLASSIFY
     Dates: start: 20190722
  9. SOLIFENACIN [Concomitant]
     Active Substance: SOLIFENACIN
     Indication: Ill-defined disorder
     Dosage: DOSE FORM REPORTED: TPP YC - PLEASE RECLASSIFY
     Dates: start: 20230622, end: 20240717
  10. MIRABEGRON [Concomitant]
     Active Substance: MIRABEGRON
     Indication: Ill-defined disorder
     Dosage: DOSE FORM REPORTED: TPP YC - PLEASE RECLASSIFY
     Dates: start: 20180406, end: 20240717
  11. HYLO NIGHT [Concomitant]
     Indication: Ill-defined disorder
     Dosage: APPLY AT NIGHT, DOSE FORM REPORTED: TPP YC - PLEASE RECLASSIFY
     Dates: start: 20230807

REACTIONS (2)
  - Dysarthria [Unknown]
  - Somnolence [Recovered/Resolved]

NARRATIVE: CASE EVENT DATE: 20240812
